FAERS Safety Report 9748241 (Version 1)
Quarter: 2013Q4

REPORT INFORMATION
  Report Type: Spontaneous
  Country: US (occurrence: None)
  Receive Date: 20131209
  Receipt Date: 20131209
  Transmission Date: 20140711
  Serious: Yes (Hospitalization)
  Sender: FDA-Public Use
  Company Number: None

PATIENT
  Age: 50 Year
  Sex: Male
  Weight: 90.72 kg

DRUGS (1)
  1. MELOXICAM [Suspect]
     Dosage: BY MOUTH
     Dates: start: 20130312

REACTIONS (2)
  - Haemorrhage [None]
  - Gastric perforation [None]
